FAERS Safety Report 9162613 (Version 1)
Quarter: 2013Q1

REPORT INFORMATION
  Report Type: Report from Study
  Country: MX (occurrence: MX)
  Receive Date: 20130314
  Receipt Date: 20130314
  Transmission Date: 20140127
  Serious: Yes (Other)
  Sender: FDA-Public Use
  Company Number: MX-ASTRAZENECA-2006UW13244

PATIENT
  Age: 64 Year
  Sex: Female
  Weight: 94.4 kg

DRUGS (5)
  1. ROSUVASTATIN [Suspect]
     Indication: TYPE 2 DIABETES MELLITUS
     Route: 048
     Dates: start: 20060331, end: 20060425
  2. ROSUVASTATIN [Suspect]
     Indication: TYPE 2 DIABETES MELLITUS
     Route: 048
     Dates: start: 20060601
  3. GLIBENCLAMIDA [Concomitant]
     Indication: TYPE 2 DIABETES MELLITUS
     Route: 048
     Dates: start: 2002
  4. CAPTOPRIL [Concomitant]
     Indication: HYPERTENSION
     Route: 048
     Dates: start: 2003
  5. AMBROXOL [Concomitant]
     Indication: PULMONARY CONGESTION

REACTIONS (4)
  - Gastrooesophageal reflux disease [Recovered/Resolved]
  - Hypertensive crisis [Recovered/Resolved]
  - Abdominal pain [Recovered/Resolved]
  - Bronchitis [Recovered/Resolved]
